FAERS Safety Report 4465036-3 (Version None)
Quarter: 2004Q3

REPORT INFORMATION
  Report Type: 
  Country: None (occurrence: None)
  Receive Date: 20040929
  Receipt Date: 20040909
  Transmission Date: 20050211
  Serious: Yes (Other)
  Sender: FDA-Public Use
  Company Number: USA040977822

PATIENT
  Age: 61 Year
  Sex: Female
  Weight: 127 kg

DRUGS (1)
  1. HUMULIN 70/30 [Suspect]
     Dosage: 72 U DAY
     Dates: start: 19940101

REACTIONS (4)
  - FEAR [None]
  - HEADACHE [None]
  - VAGINAL CANCER [None]
  - VISUAL ACUITY REDUCED [None]
